FAERS Safety Report 9630616 (Version 1)
Quarter: 2013Q4

REPORT INFORMATION
  Report Type: Spontaneous
  Country: US (occurrence: None)
  Receive Date: 20131016
  Receipt Date: 20131016
  Transmission Date: 20140711
  Serious: No
  Sender: FDA-Public Use
  Company Number: None

PATIENT
  Age: 64 Year
  Sex: Female
  Weight: 58.97 kg

DRUGS (2)
  1. ESCITALOPRAM [Suspect]
     Indication: ANXIETY
     Dosage: 1 DOSE
     Route: 048
  2. ESCITALOPRAM [Suspect]
     Indication: HOT FLUSH
     Dosage: 1 DOSE
     Route: 048

REACTIONS (6)
  - Syncope [None]
  - Electrolyte imbalance [None]
  - Dry mouth [None]
  - Diarrhoea [None]
  - Hypertension [None]
  - Paraesthesia [None]
